FAERS Safety Report 5245055-X (Version None)
Quarter: 2007Q1

REPORT INFORMATION
  Report Type: 
  Country: None (occurrence: None)
  Receive Date: 20070223
  Receipt Date: 20070214
  Transmission Date: 20070707
  Serious: Yes (Other)
  Sender: FDA-Public Use
  Company Number: DE-JNJFOC-20070200640

PATIENT
  Age: 47 Year
  Sex: Female

DRUGS (2)
  1. IMODIUM [Suspect]
     Indication: DRUG ADMINISTRATION ERROR
     Dosage: 15 PACAKGES (12 CAPSULES)
     Route: 048
  2. BROMAZANIL [Concomitant]
     Route: 065

REACTIONS (2)
  - INTENTIONAL DRUG MISUSE [None]
  - SPEECH DISORDER [None]
